FAERS Safety Report 7158979-3 (Version None)
Quarter: 2010Q4

REPORT INFORMATION
  Report Type: 
  Country: None (occurrence: None)
  Receive Date: 20101214
  Receipt Date: 20101201
  Transmission Date: 20110411
  Serious: Yes (Other)
  Sender: FDA-Public Use
  Company Number: CH-ELI_LILLY_AND_COMPANY-CH201012000526

PATIENT
  Age: 28 Year
  Sex: Female

DRUGS (1)
  1. ZYPREXA [Suspect]
     Indication: SCHIZOAFFECTIVE DISORDER
     Dosage: 5 MG, DAILY (1/D)
     Route: 048
     Dates: start: 20010101, end: 20100910

REACTIONS (2)
  - DRUG EXPOSURE DURING PREGNANCY [None]
  - PSYCHIATRIC DECOMPENSATION [None]
